FAERS Safety Report 13777194 (Version 4)
Quarter: 2017Q4

REPORT INFORMATION
  Report Type: Report from Study
  Country: US (occurrence: US)
  Receive Date: 20170720
  Receipt Date: 20171009
  Transmission Date: 20180320
  Serious: Yes (Hospitalization, Other)
  Sender: FDA-Public Use
  Company Number: US-AMGEN-USASL2017090757

PATIENT
  Age: 56 Year
  Sex: Female

DRUGS (2)
  1. COUMADIN [Concomitant]
     Active Substance: WARFARIN SODIUM
     Dosage: UNK
  2. NPLATE [Suspect]
     Active Substance: ROMIPLOSTIM
     Indication: IMMUNE THROMBOCYTOPENIC PURPURA
     Dosage: 250 MUG, QWK
     Route: 065

REACTIONS (21)
  - Arthralgia [Unknown]
  - Feeling cold [Unknown]
  - Diarrhoea [Unknown]
  - Feeling hot [Unknown]
  - Headache [Unknown]
  - Paraesthesia [Unknown]
  - Dental caries [Unknown]
  - Platelet count decreased [Unknown]
  - Off label use [Unknown]
  - Drug dose omission [Unknown]
  - Fatigue [Unknown]
  - Nephrolithiasis [Unknown]
  - Pneumonia [Unknown]
  - Chills [Unknown]
  - Pain in extremity [Unknown]
  - Migraine [Unknown]
  - Vomiting [Unknown]
  - Peripheral coldness [Unknown]
  - Platelet count abnormal [Unknown]
  - Antiphospholipid syndrome [Unknown]
  - Pulmonary thrombosis [Unknown]

NARRATIVE: CASE EVENT DATE: 201503
